FAERS Safety Report 4439050-8 (Version None)
Quarter: 2004Q3

REPORT INFORMATION
  Report Type: 
  Country: None (occurrence: None)
  Receive Date: 20040901
  Receipt Date: 20040729
  Transmission Date: 20050211
  Serious: Yes (Other)
  Sender: FDA-Public Use
  Company Number: US-GLAXOSMITHKLINE-A0520309A

PATIENT
  Age: 65 Year
  Sex: Male

DRUGS (4)
  1. BECLOMETHASONE DIPROPIONATE [Suspect]
     Indication: ASTHMA
     Route: 055
     Dates: start: 19960101, end: 20020101
  2. SEREVENT [Suspect]
     Indication: ASTHMA
     Dosage: 1PUFF TWICE PER DAY
     Route: 055
     Dates: start: 20030901
  3. SINGULAIR [Concomitant]
  4. NORVASC [Concomitant]

REACTIONS (4)
  - DYSPNOEA [None]
  - HOARSENESS [None]
  - LARYNGEAL CANCER [None]
  - PHARMACEUTICAL PRODUCT COMPLAINT [None]
